FAERS Safety Report 24736352 (Version 1)
Quarter: 2024Q4

REPORT INFORMATION
  Report Type: Spontaneous
  Country: US (occurrence: US)
  Receive Date: 20241216
  Receipt Date: 20241216
  Transmission Date: 20250115
  Serious: No
  Sender: ABBVIE
  Company Number: US-ABBVIE-6045747

PATIENT
  Sex: Male

DRUGS (4)
  1. SKYRIZI [Suspect]
     Active Substance: RISANKIZUMAB-RZAA
     Indication: Crohn^s disease
     Dosage: 360 MG/ 2.4 ML INSERT 1 CARTRIDGE INTO ON BODY
     Route: 058
     Dates: end: 202409
  2. SKYRIZI [Suspect]
     Active Substance: RISANKIZUMAB-RZAA
     Indication: Crohn^s disease
     Dosage: 600 MG/10 ML?WEEK 4
     Route: 042
     Dates: start: 20230818, end: 20230818
  3. SKYRIZI [Suspect]
     Active Substance: RISANKIZUMAB-RZAA
     Indication: Crohn^s disease
     Dosage: 600 MG/10 ML?WEEK 0
     Route: 042
     Dates: start: 20230721, end: 20230721
  4. SKYRIZI [Suspect]
     Active Substance: RISANKIZUMAB-RZAA
     Indication: Crohn^s disease
     Dosage: 600 MG/10 ML?WEEK 8
     Route: 042
     Dates: start: 20230915, end: 20230915

REACTIONS (1)
  - Therapeutic product effect decreased [Unknown]
